FAERS Safety Report 7831197-9 (Version None)
Quarter: 2011Q4

REPORT INFORMATION
  Report Type: 
  Country: None (occurrence: None)
  Receive Date: 20111021
  Receipt Date: 20111012
  Transmission Date: 20120403
  Serious: Yes (Life-Threatening, Hospitalization, Other)
  Sender: FDA-Public Use
  Company Number: FR-EISAI INC-E3810-05005-SPO-FR

PATIENT
  Sex: Female

DRUGS (10)
  1. ATORVASTATIN CALCIUM [Suspect]
     Indication: HYPERTENSION
     Dosage: UNKNOWN
     Route: 048
     Dates: start: 20110901, end: 20110927
  2. PLAVIX [Suspect]
     Indication: THROMBOSIS PROPHYLAXIS
     Dosage: UNKNOWN
     Route: 048
     Dates: start: 20110908
  3. VALSARTAN [Suspect]
     Indication: HYPERTENSION
     Dosage: UNKNOWN
     Route: 048
     Dates: end: 20110927
  4. ASPIRIN [Concomitant]
     Dates: start: 20110901
  5. ZANTAC [Concomitant]
     Dates: start: 20110901
  6. ACETAMINOPHEN [Concomitant]
     Dates: start: 20110901
  7. NISTRIDERM [Concomitant]
     Dates: start: 20110901
  8. NITROGLYCERIN [Concomitant]
     Dates: start: 20110901
  9. RABEPRAZOLE SODIUM [Suspect]
     Dosage: UNKNOWN
     Route: 048
     Dates: start: 20110901, end: 20110901
  10. BISOPROLOL FUMARATE [Concomitant]
     Dates: start: 20110901

REACTIONS (7)
  - DYSPNOEA [None]
  - HYPOTENSION [None]
  - URTICARIA [None]
  - DYSPHAGIA [None]
  - OEDEMA [None]
  - SWOLLEN TONGUE [None]
  - CHEST DISCOMFORT [None]
